FAERS Safety Report 6474522-6 (Version None)
Quarter: 2009Q4

REPORT INFORMATION
  Report Type: 
  Country: None (occurrence: None)
  Receive Date: 20091204
  Receipt Date: 20081229
  Transmission Date: 20100525
  Serious: No
  Sender: FDA-Public Use
  Company Number: US-AMGEN-KDL326002

PATIENT
  Sex: Female
  Weight: 71.7 kg

DRUGS (1)
  1. ENBREL [Suspect]
     Indication: RHEUMATOID ARTHRITIS
     Route: 058
     Dates: start: 20080421

REACTIONS (4)
  - BUNION [None]
  - JOINT DISLOCATION [None]
  - SOFT TISSUE DISORDER [None]
  - TENDON DISORDER [None]
